FAERS Safety Report 8234214-X (Version None)
Quarter: 2012Q1

REPORT INFORMATION
  Report Type: 
  Country: None (occurrence: None)
  Receive Date: 20120326
  Receipt Date: 20120323
  Transmission Date: 20120608
  Serious: Yes (Other)
  Sender: FDA-Public Use
  Company Number: AU-PFIZER INC-2012076424

PATIENT
  Age: 23 Year
  Sex: Male
  Weight: 83 kg

DRUGS (1)
  1. VARENICLINE TARTRATE [Suspect]
     Indication: TOBACCO USER
     Dosage: 1 MG, 1X/DAY
     Dates: start: 20111007, end: 20111021

REACTIONS (2)
  - DISTURBANCE IN ATTENTION [None]
  - ABNORMAL BEHAVIOUR [None]
